FAERS Safety Report 5813314-5 (Version None)
Quarter: 2008Q3

REPORT INFORMATION
  Report Type: 
  Country: None (occurrence: None)
  Receive Date: 20080717
  Receipt Date: 20080716
  Transmission Date: 20090109
  Serious: Yes (Other)
  Sender: FDA-Public Use
  Company Number: A0677720A

PATIENT

DRUGS (6)
  1. ALLI [Suspect]
     Route: 048
     Dates: start: 20070726
  2. BEANO [Suspect]
  3. TYLENOL [Suspect]
  4. UNSPECIFIED MEDICATION [Suspect]
  5. LAXATIVE [Suspect]
  6. NSAID [Suspect]
     Indication: DRUG USE FOR UNKNOWN INDICATION
     Route: 065

REACTIONS (17)
  - ABDOMINAL PAIN UPPER [None]
  - CONSTIPATION [None]
  - DIARRHOEA [None]
  - DRUG INEFFECTIVE [None]
  - FAECES DISCOLOURED [None]
  - FLATULENCE [None]
  - FOOD CRAVING [None]
  - FREQUENT BOWEL MOVEMENTS [None]
  - GASTRIC ULCER [None]
  - GASTROINTESTINAL SOUNDS ABNORMAL [None]
  - HELICOBACTER INFECTION [None]
  - PAIN [None]
  - RECTAL DISCHARGE [None]
  - STEATORRHOEA [None]
  - THERAPEUTIC RESPONSE DECREASED [None]
  - WEIGHT FLUCTUATION [None]
  - WEIGHT INCREASED [None]
